FAERS Safety Report 12989529 (Version 1)
Quarter: 2016Q4

REPORT INFORMATION
  Report Type: Spontaneous
  Country: US (occurrence: US)
  Receive Date: 20161201
  Receipt Date: 20161201
  Transmission Date: 20170207
  Serious: No
  Sender: FDA-Public Use
  Company Number: US-LUPIN PHARMACEUTICALS INC.-E2B_00006101

PATIENT
  Age: 51 Year
  Sex: Female
  Weight: 55.39 kg

DRUGS (1)
  1. LEVONORGESTREL AND ETHINYL ESTRADIOL TABLETS USP, 0.15 MG/0.03 MG [Suspect]
     Active Substance: ETHINYL ESTRADIOL\LEVONORGESTREL
     Indication: MENOMETRORRHAGIA
     Dosage: 0.15 MG/0.03MG
     Route: 048
     Dates: start: 2016

REACTIONS (6)
  - Dizziness [Unknown]
  - Polymenorrhoea [Recovered/Resolved]
  - Insomnia [Not Recovered/Not Resolved]
  - Head discomfort [Unknown]
  - Blood pressure increased [Not Recovered/Not Resolved]
  - Heart rate increased [Not Recovered/Not Resolved]

NARRATIVE: CASE EVENT DATE: 20160812
